FAERS Safety Report 13566502 (Version 2)
Quarter: 2017Q2

REPORT INFORMATION
  Report Type: Spontaneous
  Country: US (occurrence: US)
  Receive Date: 20170522
  Receipt Date: 20170627
  Transmission Date: 20170830
  Serious: Yes (Hospitalization)
  Sender: FDA-Public Use
  Company Number: US-ASTRAZENECA-2017SE52390

PATIENT
  Age: 590 Month
  Sex: Male
  Weight: 200 kg

DRUGS (20)
  1. TOPIRAMATE. [Concomitant]
     Active Substance: TOPIRAMATE
     Route: 048
  2. GLIPIZIDE. [Concomitant]
     Active Substance: GLIPIZIDE
     Route: 048
  3. ATORVASTATIN [Concomitant]
     Active Substance: ATORVASTATIN
     Route: 048
  4. POTASSIUM CHLORIDE. [Concomitant]
     Active Substance: POTASSIUM CHLORIDE
     Route: 048
  5. GABAPENTIN. [Concomitant]
     Active Substance: GABAPENTIN
     Route: 048
  6. METFORMIN [Concomitant]
     Active Substance: METFORMIN HYDROCHLORIDE
     Indication: DIABETES MELLITUS
     Route: 048
  7. METHADONE [Concomitant]
     Active Substance: METHADONE HYDROCHLORIDE
     Indication: PAIN
  8. QUETIAPINE. [Suspect]
     Active Substance: QUETIAPINE
     Indication: SLEEP DISORDER
     Route: 048
  9. BACLOFEN. [Concomitant]
     Active Substance: BACLOFEN
     Route: 048
  10. WARFARIN [Concomitant]
     Active Substance: WARFARIN
     Dosage: 15 MG ON WEDNESDAYS
     Route: 048
  11. QUETIAPINE. [Suspect]
     Active Substance: QUETIAPINE
     Indication: SLEEP DISORDER
     Route: 048
  12. QUETIAPINE. [Suspect]
     Active Substance: QUETIAPINE
     Indication: ANGER
     Route: 048
  13. LAMOTRIGINE. [Concomitant]
     Active Substance: LAMOTRIGINE
     Route: 048
  14. WARFARIN [Concomitant]
     Active Substance: WARFARIN
     Route: 048
  15. BYDUREON [Suspect]
     Active Substance: EXENATIDE
     Indication: TYPE 2 DIABETES MELLITUS
     Route: 058
  16. LISINOPRIL. [Suspect]
     Active Substance: LISINOPRIL
     Indication: CARDIAC DISORDER
     Route: 048
  17. OMEPRAZOLE. [Suspect]
     Active Substance: OMEPRAZOLE
     Indication: ULCER
     Route: 048
  18. QUETIAPINE. [Suspect]
     Active Substance: QUETIAPINE
     Indication: ANGER
     Route: 048
  19. SYMBICORT [Suspect]
     Active Substance: BUDESONIDE\FORMOTEROL FUMARATE DIHYDRATE
     Indication: DYSPNOEA
     Dosage: 4.5 MCG EVERY DAY
     Route: 055
  20. ALPRAZOLAM. [Concomitant]
     Active Substance: ALPRAZOLAM
     Route: 048

REACTIONS (17)
  - Osteoarthritis [Not Recovered/Not Resolved]
  - Type 2 diabetes mellitus [Unknown]
  - Amnesia [Not Recovered/Not Resolved]
  - Stress [Unknown]
  - Anger [Unknown]
  - Agitation [Unknown]
  - Myocardial infarction [Recovered/Resolved]
  - Fibromyalgia [Not Recovered/Not Resolved]
  - Hypertension [Recovered/Resolved]
  - Asthma [Recovered/Resolved]
  - Chest pain [Recovered/Resolved]
  - Vasospasm [Recovered/Resolved]
  - Weight decreased [Unknown]
  - Dyspnoea [Unknown]
  - Circumstance or information capable of leading to medication error [Not Recovered/Not Resolved]
  - Off label use [Unknown]
  - Product use issue [Unknown]

NARRATIVE: CASE EVENT DATE: 201609
